FAERS Safety Report 7294728-6 (Version None)
Quarter: 2011Q1

REPORT INFORMATION
  Report Type: 
  Country: None (occurrence: None)
  Receive Date: 20110216
  Receipt Date: 20110209
  Transmission Date: 20110831
  Serious: Yes (Other)
  Sender: FDA-Public Use
  Company Number: DE-PFIZER INC-2011029800

PATIENT
  Age: 84 Year
  Sex: Female

DRUGS (7)
  1. TAMOXIFEN CITRATE [Suspect]
     Indication: BREAST CANCER
     Dosage: UNK
     Dates: start: 20060101
  2. AZULFIDINE [Suspect]
     Indication: BORRELIA TEST POSITIVE
     Dosage: UNK
     Dates: start: 20010101
  3. LASIX [Concomitant]
     Dosage: UNK
  4. AZULFIDINE [Suspect]
     Indication: PAIN
     Dosage: 4 TABLETS DAILY (2 IN THE MORNING, 2 IN THE EVENING)
     Dates: start: 20030101
  5. RAMIPRIL [Concomitant]
     Dosage: UNK
  6. LEVOTHYROXINE SODIUM [Concomitant]
     Dosage: UNK
  7. BISOPROLOL FUMARATE [Concomitant]
     Dosage: UNK

REACTIONS (6)
  - HEPATIC STEATOSIS [None]
  - DIZZINESS [None]
  - TINNITUS [None]
  - PALPITATIONS [None]
  - DYSPNOEA [None]
  - BREAST CANCER [None]
